FAERS Safety Report 4861471-X (Version None)
Quarter: 2005Q4

REPORT INFORMATION
  Report Type: 
  Country: None (occurrence: None)
  Receive Date: 20051129
  Receipt Date: 20050509
  Transmission Date: 20060501
  Serious: Yes (Other)
  Sender: FDA-Public Use
  Company Number: WAES 0505USA01121

PATIENT
  Age: 61 Year
  Sex: Female
  Weight: 59.4212 kg

DRUGS (3)
  1. FOSAMAX [Suspect]
     Indication: OSTEOPOROSIS
     Dosage: 70MG/WKY/PO
     Route: 048
     Dates: start: 20050503, end: 20050503
  2. DONA [Concomitant]
  3. DICLOFENAC [Concomitant]

REACTIONS (2)
  - HEADACHE [None]
  - IRITIS [None]
